FAERS Safety Report 20157186 (Version 1)
Quarter: 2021Q4

REPORT INFORMATION
  Report Type: Report from Study
  Country: FR (occurrence: FR)
  Receive Date: 20211207
  Receipt Date: 20211207
  Transmission Date: 20220303
  Serious: Yes (Other)
  Sender: FDA-Public Use
  Company Number: FR-TAKEDA-2021TUS075933

PATIENT
  Age: 76 Year
  Sex: Female

DRUGS (25)
  1. TEDUGLUTIDE [Suspect]
     Active Substance: TEDUGLUTIDE
     Indication: Short-bowel syndrome
     Dosage: 5 MILLIGRAM, QD
     Route: 065
     Dates: start: 20170608, end: 20171219
  2. TEDUGLUTIDE [Suspect]
     Active Substance: TEDUGLUTIDE
     Indication: Short-bowel syndrome
     Dosage: 5 MILLIGRAM, QD
     Route: 065
     Dates: start: 20170608, end: 20171219
  3. TEDUGLUTIDE [Suspect]
     Active Substance: TEDUGLUTIDE
     Indication: Short-bowel syndrome
     Dosage: 5 MILLIGRAM, QD
     Route: 065
     Dates: start: 20170608, end: 20171219
  4. TEDUGLUTIDE [Suspect]
     Active Substance: TEDUGLUTIDE
     Indication: Short-bowel syndrome
     Dosage: 5 MILLIGRAM, QD
     Route: 065
     Dates: start: 20170608, end: 20171219
  5. TEDUGLUTIDE [Suspect]
     Active Substance: TEDUGLUTIDE
     Dosage: 7.65 MILLIGRAM, QD
     Route: 065
     Dates: start: 20171220, end: 201806
  6. TEDUGLUTIDE [Suspect]
     Active Substance: TEDUGLUTIDE
     Dosage: 7.65 MILLIGRAM, QD
     Route: 065
     Dates: start: 20171220, end: 201806
  7. TEDUGLUTIDE [Suspect]
     Active Substance: TEDUGLUTIDE
     Dosage: 7.65 MILLIGRAM, QD
     Route: 065
     Dates: start: 20171220, end: 201806
  8. TEDUGLUTIDE [Suspect]
     Active Substance: TEDUGLUTIDE
     Dosage: 7.65 MILLIGRAM, QD
     Route: 065
     Dates: start: 20171220, end: 201806
  9. TEDUGLUTIDE [Suspect]
     Active Substance: TEDUGLUTIDE
     Dosage: 1.06 MILLIGRAM, QD
     Route: 065
     Dates: start: 201806, end: 20181110
  10. TEDUGLUTIDE [Suspect]
     Active Substance: TEDUGLUTIDE
     Dosage: 1.06 MILLIGRAM, QD
     Route: 065
     Dates: start: 201806, end: 20181110
  11. TEDUGLUTIDE [Suspect]
     Active Substance: TEDUGLUTIDE
     Dosage: 1.06 MILLIGRAM, QD
     Route: 065
     Dates: start: 201806, end: 20181110
  12. TEDUGLUTIDE [Suspect]
     Active Substance: TEDUGLUTIDE
     Dosage: 1.06 MILLIGRAM, QD
     Route: 065
     Dates: start: 201806, end: 20181110
  13. TEDUGLUTIDE [Suspect]
     Active Substance: TEDUGLUTIDE
     Dosage: 1.25 MILLIGRAM, QD
     Route: 065
     Dates: start: 20181111, end: 20190212
  14. TEDUGLUTIDE [Suspect]
     Active Substance: TEDUGLUTIDE
     Dosage: 1.25 MILLIGRAM, QD
     Route: 065
     Dates: start: 20181111, end: 20190212
  15. TEDUGLUTIDE [Suspect]
     Active Substance: TEDUGLUTIDE
     Dosage: 1.25 MILLIGRAM, QD
     Route: 065
     Dates: start: 20181111, end: 20190212
  16. TEDUGLUTIDE [Suspect]
     Active Substance: TEDUGLUTIDE
     Dosage: 1.25 MILLIGRAM, QD
     Route: 065
     Dates: start: 20181111, end: 20190212
  17. TEDUGLUTIDE [Suspect]
     Active Substance: TEDUGLUTIDE
     Dosage: 2.16 MILLIGRAM, QD
     Route: 065
     Dates: start: 20190213
  18. TEDUGLUTIDE [Suspect]
     Active Substance: TEDUGLUTIDE
     Dosage: 2.16 MILLIGRAM, QD
     Route: 065
     Dates: start: 20190213
  19. TEDUGLUTIDE [Suspect]
     Active Substance: TEDUGLUTIDE
     Dosage: 2.16 MILLIGRAM, QD
     Route: 065
     Dates: start: 20190213
  20. TEDUGLUTIDE [Suspect]
     Active Substance: TEDUGLUTIDE
     Dosage: 2.16 MILLIGRAM, QD
     Route: 065
     Dates: start: 20190213
  21. VANCOMYCIN [Concomitant]
     Active Substance: VANCOMYCIN
     Indication: Vascular device infection
     Dosage: 1 GRAM
     Route: 065
     Dates: start: 202008
  22. URSODIOL [Concomitant]
     Active Substance: URSODIOL
     Indication: Cholestasis
     Dosage: 500 MILLIGRAM, TID
     Route: 048
     Dates: start: 20200903
  23. URSODIOL [Concomitant]
     Active Substance: URSODIOL
     Indication: Cell death
  24. ACETAMINOPHEN [Concomitant]
     Active Substance: ACETAMINOPHEN
     Indication: Stoma site discomfort
     Dosage: 1000 MILLIGRAM, QID
     Route: 048
     Dates: start: 20170216
  25. Phloroglucinol dihydrate;Trimethylphloroglucinol [Concomitant]
     Indication: Stoma complication
     Dosage: 2 INTERNATIONAL UNIT, TID
     Route: 048
     Dates: start: 20170216

REACTIONS (4)
  - Cholestasis [Not Recovered/Not Resolved]
  - Renal failure [Not Recovered/Not Resolved]
  - Cell death [Not Recovered/Not Resolved]
  - Staphylococcal infection [Recovered/Resolved]

NARRATIVE: CASE EVENT DATE: 20200801
